FAERS Safety Report 12334449 (Version 1)
Quarter: 2016Q2

REPORT INFORMATION
  Report Type: Spontaneous
  Country: US (occurrence: US)
  Receive Date: 20160504
  Receipt Date: 20160504
  Transmission Date: 20160815
  Serious: Yes (Life-Threatening, Hospitalization, Other)
  Sender: FDA-Public Use
  Company Number: US-ELI_LILLY_AND_COMPANY-US200603002664

PATIENT
  Age: 57 Year
  Sex: Female
  Weight: 86.17 kg

DRUGS (3)
  1. PROZAC [Suspect]
     Active Substance: FLUOXETINE HYDROCHLORIDE
     Indication: PRODUCT USED FOR UNKNOWN INDICATION
  2. ZYPREXA [Suspect]
     Active Substance: OLANZAPINE
     Indication: DEPRESSION
     Dosage: 2.5 MG, DAILY (1/D)
     Route: 065
     Dates: start: 200003, end: 200201
  3. CYMBALTA [Suspect]
     Active Substance: DULOXETINE HYDROCHLORIDE
     Indication: PRODUCT USED FOR UNKNOWN INDICATION
     Dosage: UNK, UNKNOWN
     Route: 065

REACTIONS (14)
  - Diabetic coma [Recovered/Resolved with Sequelae]
  - Off label use [Unknown]
  - Blood cholesterol abnormal [Unknown]
  - Cardio-respiratory arrest [Unknown]
  - Hypertension [Unknown]
  - Gait disturbance [Unknown]
  - Tearfulness [Unknown]
  - Suicidal ideation [Unknown]
  - Speech disorder [Unknown]
  - Visual impairment [Unknown]
  - Diabetic ketoacidosis [Unknown]
  - Weight increased [Unknown]
  - Feeling abnormal [Unknown]
  - Type 2 diabetes mellitus [Not Recovered/Not Resolved]

NARRATIVE: CASE EVENT DATE: 20010224
